FAERS Safety Report 20240077 (Version 4)
Quarter: 2022Q1

REPORT INFORMATION
  Report Type: Report from Study
  Country: FR (occurrence: FR)
  Receive Date: 20211228
  Receipt Date: 20220307
  Transmission Date: 20220423
  Serious: Yes (Life-Threatening, Hospitalization, Other)
  Sender: FDA-Public Use
  Company Number: FR-BRISTOL-MYERS SQUIBB COMPANY-BMS-2021-141246

PATIENT
  Age: 58 Year
  Sex: Male
  Weight: 84 kg

DRUGS (2)
  1. NIVOLUMAB [Suspect]
     Active Substance: NIVOLUMAB
     Indication: Sarcoma
     Dosage: 252 MILLIGRAM, Q2WK
     Route: 042
     Dates: start: 20211130, end: 20211229
  2. IPILIMUMAB [Suspect]
     Active Substance: IPILIMUMAB
     Indication: Sarcoma
     Dosage: 84 MILLIGRAM, Q6WK
     Route: 042
     Dates: start: 20211130, end: 20211229

REACTIONS (1)
  - Diabetic coma [Recovered/Resolved with Sequelae]

NARRATIVE: CASE EVENT DATE: 20211220
